FAERS Safety Report 4875963-0 (Version None)
Quarter: 2005Q4

REPORT INFORMATION
  Report Type: 
  Country: None (occurrence: None)
  Receive Date: 20051206
  Receipt Date: 20050909
  Transmission Date: 20060501
  Serious: Yes (Other)
  Sender: FDA-Public Use
  Company Number: US_0509121913

PATIENT
  Age: 42 Year
  Sex: Female

DRUGS (7)
  1. CYMBALTA [Suspect]
     Indication: DEPRESSION
     Dosage: 60 MG DAY
     Dates: start: 20050610, end: 20050813
  2. FLONASE [Concomitant]
  3. LORAZEPAM [Concomitant]
  4. SYNTHROID [Concomitant]
  5. BENADRYL [Concomitant]
  6. ACYCLOVIR [Concomitant]
  7. LEXAPRO [Concomitant]

REACTIONS (8)
  - AGITATION [None]
  - ESSENTIAL TREMOR [None]
  - HOSTILITY [None]
  - HOT FLUSH [None]
  - HYPERHIDROSIS [None]
  - NERVOUS SYSTEM DISORDER [None]
  - NIGHTMARE [None]
  - SUICIDAL IDEATION [None]
